FAERS Safety Report 5193195-6 (Version None)
Quarter: 2006Q4

REPORT INFORMATION
  Report Type: 
  Country: None (occurrence: None)
  Receive Date: 20061221
  Receipt Date: 20061212
  Transmission Date: 20070319
  Serious: Yes (Death)
  Sender: FDA-Public Use
  Company Number: 2006JP004617

PATIENT
  Age: 82 Year
  Sex: Female

DRUGS (7)
  1. PROGRAF [Suspect]
     Indication: RHEUMATOID ARTHRITIS
     Dosage: 1 MG, UID/QD, ORAL
     Route: 048
     Dates: start: 20060516, end: 20060727
  2. PROGRAF [Suspect]
     Indication: RHEUMATOID ARTHRITIS
     Dosage: 1 MG, UID/QD, ORAL
     Route: 048
     Dates: start: 20060803, end: 20060914
  3. PROGRAF [Suspect]
     Indication: RHEUMATOID ARTHRITIS
     Dosage: 1 MG, UID/QD, ORAL
     Route: 048
     Dates: start: 20060915
  4. LANSOPRAZOLE [Concomitant]
  5. RIMATIL (BUCILLAMINE) [Concomitant]
  6. METALCAPTASE [Concomitant]
  7. CONIEL (BENIDIPINE HYDROCHLORIDE) [Concomitant]

REACTIONS (11)
  - ANGINA PECTORIS [None]
  - BLOOD UREA INCREASED [None]
  - CARDIAC AMYLOIDOSIS [None]
  - CARDIAC HYPERTROPHY [None]
  - CARDIO-RESPIRATORY ARREST [None]
  - GASTRIC ULCER [None]
  - MYOCARDIAL INFARCTION [None]
  - OEDEMA PERIPHERAL [None]
  - RENAL DISORDER [None]
  - SUDDEN CARDIAC DEATH [None]
  - TREATMENT NONCOMPLIANCE [None]
